FAERS Safety Report 8285338-2 (Version None)
Quarter: 2012Q2

REPORT INFORMATION
  Report Type: 
  Country: None (occurrence: None)
  Receive Date: 20120413
  Receipt Date: 20120221
  Transmission Date: 20120825
  Serious: No
  Sender: FDA-Public Use
  Company Number: US-ASTRAZENECA-2012SE12077

PATIENT
  Sex: Female

DRUGS (4)
  1. CHOCOCAPLETS [Concomitant]
     Indication: FLATULENCE
  2. NEXIUM [Suspect]
     Route: 048
  3. PREVACID (OTC OMEPRAZOLE) [Concomitant]
  4. REGLAN [Concomitant]

REACTIONS (11)
  - IRRITABLE BOWEL SYNDROME [None]
  - GASTROOESOPHAGEAL REFLUX DISEASE [None]
  - DYSPHAGIA [None]
  - ULCER [None]
  - OESOPHAGEAL DISORDER [None]
  - DIARRHOEA [None]
  - HIATUS HERNIA [None]
  - ABDOMINAL PAIN [None]
  - SPEECH DISORDER [None]
  - PAIN [None]
  - ERUCTATION [None]
